FAERS Safety Report 9738177 (Version 2)
Quarter: 2013Q4

REPORT INFORMATION
  Report Type: Spontaneous
  Country: US (occurrence: US)
  Receive Date: 20131208
  Receipt Date: 20131208
  Transmission Date: 20140711
  Serious: No
  Sender: FDA-Public Use
  Company Number: -SAAVPROD-RENA-1001806

PATIENT
  Age: 53 Year
  Sex: Male

DRUGS (1)
  1. SEVELAMER CARBONATE [Suspect]
     Indication: HYPERPHOSPHATAEMIA
     Dosage: 12 G, QD
     Route: 048
     Dates: start: 20130301

REACTIONS (2)
  - Hyperphosphataemia [Recovered/Resolved]
  - Treatment noncompliance [Unknown]
